FAERS Safety Report 8862916 (Version 3)
Quarter: 2013Q1

REPORT INFORMATION
  Report Type: Spontaneous
  Country: US (occurrence: US)
  Receive Date: 20121026
  Receipt Date: 20130122
  Transmission Date: 20140127
  Serious: No
  Sender: FDA-Public Use
  Company Number: US-009507513-1210USA010361

PATIENT
  Sex: Male

DRUGS (3)
  1. VICTRELIS [Suspect]
     Indication: HEPATITIS C
     Dosage: 800 MG, TID
     Route: 048
     Dates: start: 20120516
  2. RIBASPHERE [Suspect]
  3. PEGASYS [Suspect]

REACTIONS (3)
  - White blood cell count decreased [Unknown]
  - Asthenia [Unknown]
  - Red blood cell count decreased [Unknown]
